FAERS Safety Report 15697082 (Version 1)
Quarter: 2018Q4

REPORT INFORMATION
  Report Type: Spontaneous
  Country: US (occurrence: US)
  Receive Date: 20181206
  Receipt Date: 20181206
  Transmission Date: 20190205
  Serious: No
  Sender: FDA-Public Use
  Company Number: US-PFIZER INC-2018496474

PATIENT
  Age: 77 Year
  Sex: Female

DRUGS (1)
  1. CLINDAMYCIN PHOSPHATE. [Suspect]
     Active Substance: CLINDAMYCIN PHOSPHATE
     Dosage: 150 MG, UNK

REACTIONS (5)
  - Swollen tongue [Unknown]
  - Pharyngeal oedema [Unknown]
  - Wheezing [Unknown]
  - Drug hypersensitivity [Unknown]
  - Cough [Unknown]
